FAERS Safety Report 5503644-9 (Version None)
Quarter: 2007Q4

REPORT INFORMATION
  Report Type: 
  Country: None (occurrence: None)
  Receive Date: 20071101
  Receipt Date: 20071022
  Transmission Date: 20080405
  Serious: Yes (Hospitalization, Disabling, Other)
  Sender: FDA-Public Use
  Company Number: PHBS2007JP07803

PATIENT
  Age: 75 Year
  Sex: Male

DRUGS (11)
  1. GLEEVEC [Suspect]
     Indication: CHRONIC MYELOID LEUKAEMIA
     Dosage: 200 MG/D
     Route: 048
     Dates: start: 20060607, end: 20060614
  2. GLEEVEC [Suspect]
     Dosage: 400 MG/D
     Route: 048
     Dates: start: 20060615, end: 20060704
  3. GLEEVEC [Suspect]
     Dosage: 300 MG/D
     Route: 048
     Dates: start: 20060721, end: 20060914
  4. GLEEVEC [Suspect]
     Dosage: 200 MG/D
     Route: 048
     Dates: start: 20060929, end: 20070206
  5. GLEEVEC [Suspect]
     Dosage: 300 MG/D
     Route: 048
     Dates: start: 20070207, end: 20070423
  6. KLARICID [Concomitant]
     Indication: ATYPICAL MYCOBACTERIAL INFECTION
     Dosage: 200 MG/D
     Route: 048
     Dates: start: 20050101, end: 20070423
  7. FAMOTIDINE [Concomitant]
     Dosage: 20 MG/D
     Route: 048
     Dates: start: 20041119
  8. ZYLORIC [Concomitant]
     Dosage: 200 MG/D
     Route: 048
     Dates: start: 20070419
  9. BLADDERON [Concomitant]
     Dosage: 400 MG/D
     Route: 048
     Dates: start: 20061027, end: 20070507
  10. PREDONINE [Concomitant]
     Dosage: 20 MG/D
     Route: 048
     Dates: start: 20060922
  11. MAGNESIUM OXIDE [Concomitant]
     Dosage: 750 MG/D
     Route: 048
     Dates: start: 20070417

REACTIONS (13)
  - ANAEMIA [None]
  - BLOOD CREATININE INCREASED [None]
  - BLOOD UREA INCREASED [None]
  - C-REACTIVE PROTEIN INCREASED [None]
  - DRUG ERUPTION [None]
  - MALIGNANT NEOPLASM PROGRESSION [None]
  - OEDEMA [None]
  - PLATELET COUNT DECREASED [None]
  - PYELONEPHRITIS [None]
  - PYREXIA [None]
  - RENAL FAILURE ACUTE [None]
  - URINARY TRACT INFECTION [None]
  - WHITE BLOOD CELL COUNT INCREASED [None]
